FAERS Safety Report 10416700 (Version 1)
Quarter: 2014Q3

REPORT INFORMATION
  Report Type: Spontaneous
  Country: US (occurrence: US)
  Receive Date: 20140828
  Receipt Date: 20140828
  Transmission Date: 20150326
  Serious: Yes (Hospitalization, Other)
  Sender: FDA-Public Use
  Company Number: US-009507513-1408USA014891

PATIENT
  Sex: Female

DRUGS (1)
  1. NUVARING [Suspect]
     Active Substance: ETHINYL ESTRADIOL\ETONOGESTREL
     Route: 067

REACTIONS (14)
  - Biliary colic [Unknown]
  - Deep vein thrombosis [Recovering/Resolving]
  - Heparin-induced thrombocytopenia [Unknown]
  - Respiratory failure [Recovered/Resolved]
  - Iron deficiency anaemia [Unknown]
  - Dialysis [Unknown]
  - Ischaemia [Unknown]
  - May-Thurner syndrome [Unknown]
  - Compartment syndrome [Unknown]
  - Fasciotomy [Unknown]
  - Packed red blood cell transfusion [Unknown]
  - Renal failure [Unknown]
  - Skin graft [Unknown]
  - Gastrooesophageal reflux disease [Unknown]

NARRATIVE: CASE EVENT DATE: 2012
